FAERS Safety Report 5747001-9 (Version None)
Quarter: 2008Q2

REPORT INFORMATION
  Report Type: 
  Country: None (occurrence: None)
  Receive Date: 20080522
  Receipt Date: 20080515
  Transmission Date: 20081010
  Serious: Yes (Other)
  Sender: FDA-Public Use
  Company Number: US-PFIZER INC-2008042170

PATIENT
  Sex: Male
  Weight: 81.818 kg

DRUGS (2)
  1. NORVASC [Suspect]
     Indication: HYPERTENSION
  2. BETA BLOCKING AGENTS [Concomitant]

REACTIONS (2)
  - CHROMATURIA [None]
  - DIABETES MELLITUS [None]
